FAERS Safety Report 21590247 (Version 2)
Quarter: 2022Q4

REPORT INFORMATION
  Report Type: Report from Study
  Country: US (occurrence: US)
  Receive Date: 20221114
  Receipt Date: 20221208
  Transmission Date: 20230113
  Serious: Yes (Hospitalization, Other)
  Sender: FDA-Public Use
  Company Number: US-GILEAD-2022-0604656

PATIENT
  Sex: Female

DRUGS (1)
  1. AZTREONAM LYSINE [Suspect]
     Active Substance: AZTREONAM LYSINE
     Indication: Cystic fibrosis
     Dosage: 75 MG, TID
     Route: 055
     Dates: start: 20220714

REACTIONS (8)
  - Cystic fibrosis [Unknown]
  - Gastrointestinal fungal infection [Unknown]
  - Gastrointestinal bacterial infection [Unknown]
  - Hypertension [Unknown]
  - Gastric disorder [Unknown]
  - Nausea [Unknown]
  - Hernia [Unknown]
  - Impaired gastric emptying [Unknown]
